FAERS Safety Report 4781642-0 (Version None)
Quarter: 2005Q3

REPORT INFORMATION
  Report Type: 
  Country: None (occurrence: None)
  Receive Date: 20050927
  Receipt Date: 20050915
  Transmission Date: 20060218
  Serious: Yes (Other)
  Sender: FDA-Public Use
  Company Number: 05-02-06233

PATIENT
  Age: 74 Year
  Sex: Male

DRUGS (7)
  1. CETUXIMAB (CETUXIMAB) [Suspect]
     Indication: COLORECTAL CANCER METASTATIC
     Dosage: SEE IMAGE, INTRAVENOUS
     Route: 042
     Dates: start: 20050221, end: 20050221
  2. CETUXIMAB (CETUXIMAB) [Suspect]
     Indication: COLORECTAL CANCER METASTATIC
     Dosage: SEE IMAGE, INTRAVENOUS
     Route: 042
     Dates: start: 20050518, end: 20050518
  3. IRINOTECAN (IRINOTECAN) [Suspect]
     Indication: COLORECTAL CANCER METASTATIC
     Dosage: SEE IMAGE, INTRAVENOUS
     Route: 042
     Dates: start: 20050221, end: 20050221
  4. IRINOTECAN (IRINOTECAN) [Suspect]
     Indication: COLORECTAL CANCER METASTATIC
     Dosage: SEE IMAGE, INTRAVENOUS
     Route: 042
     Dates: start: 20050518, end: 20050518
  5. CHLORPHENIRAMINE MALEATE [Concomitant]
  6. RANITIDINE [Concomitant]
  7. ATROPINE [Concomitant]

REACTIONS (2)
  - ANOREXIA [None]
  - DIARRHOEA [None]
